FAERS Safety Report 7373710-4 (Version None)
Quarter: 2011Q1

REPORT INFORMATION
  Report Type: 
  Country: None (occurrence: None)
  Receive Date: 20110325
  Receipt Date: 20100623
  Transmission Date: 20110831
  Serious: No
  Sender: FDA-Public Use
  Company Number: US-MYLANLABS-2010S1011314

PATIENT
  Age: 55 Year
  Sex: Female

DRUGS (2)
  1. KLONOPIN [Concomitant]
  2. SERTRALINE HYDROCHLORIDE [Suspect]
     Indication: DEPRESSION
     Route: 048
     Dates: start: 20100601

REACTIONS (4)
  - HEADACHE [None]
  - DECREASED APPETITE [None]
  - FATIGUE [None]
  - MYALGIA [None]
